FAERS Safety Report 19559778 (Version 1)
Quarter: 2021Q3

REPORT INFORMATION
  Report Type: Spontaneous
  Country: US (occurrence: US)
  Receive Date: 20210715
  Receipt Date: 20210715
  Transmission Date: 20211014
  Serious: No
  Sender: FDA-Public Use
  Company Number: None

PATIENT
  Age: 40 Year
  Sex: Female
  Weight: 82.8 kg

DRUGS (3)
  1. LEVOTHYROXINE 50 MCG [Suspect]
     Active Substance: LEVOTHYROXINE
     Indication: THYROID HORMONES DECREASED
     Dosage: ?          OTHER STRENGTH:MCG;QUANTITY:1 TABLET(S);?
     Route: 048
     Dates: start: 20210507, end: 20210707
  2. ZYRTEC [Concomitant]
     Active Substance: CETIRIZINE HYDROCHLORIDE
  3. MULTI VITAMIN [Concomitant]
     Active Substance: VITAMINS

REACTIONS (2)
  - Rash [None]
  - Urticaria [None]

NARRATIVE: CASE EVENT DATE: 20210528
